FAERS Safety Report 8802214 (Version 1)
Quarter: 2012Q4

REPORT INFORMATION
  Report Type: 
  Country: US (occurrence: US)
  Receive Date: 20120921
  Receipt Date: 20120921
  Transmission Date: 20130627
  Serious: Yes (Other)
  Sender: FDA-Public Use
  Company Number: US-ASTRAZENECA-2012SE71439

PATIENT
  Age: 62 Year
  Sex: Female
  Weight: 67.1 kg

DRUGS (4)
  1. NEXIUM [Suspect]
     Indication: GASTROOESOPHAGEAL REFLUX DISEASE
     Dosage: DAILY
     Route: 048
     Dates: start: 2008
  2. NEXIUM [Suspect]
     Indication: GASTROOESOPHAGEAL REFLUX DISEASE
     Route: 048
     Dates: end: 201207
  3. CARAFATE [Concomitant]
     Indication: GASTRIC DISORDER
     Dosage: 2 TBSP, Q4H
     Route: 048
     Dates: start: 2012
  4. ZOFRAN [Concomitant]
     Indication: NAUSEA
     Route: 048
     Dates: start: 2012

REACTIONS (6)
  - Oesophageal ulcer [Unknown]
  - Barrett^s oesophagus [Unknown]
  - Oesophageal pain [Unknown]
  - Blood magnesium decreased [Unknown]
  - Insomnia [Unknown]
  - Intentional drug misuse [Unknown]
